FAERS Safety Report 7679627-X (Version None)
Quarter: 2011Q3

REPORT INFORMATION
  Report Type: 
  Country: None (occurrence: None)
  Receive Date: 20110812
  Receipt Date: 20110804
  Transmission Date: 20111222
  Serious: Yes (Other)
  Sender: FDA-Public Use
  Company Number: US-AMGEN-USASP2011036143

PATIENT
  Age: 52 Year
  Sex: Female

DRUGS (1)
  1. ENBREL [Suspect]
     Indication: RHEUMATOID ARTHRITIS
     Dosage: 50 MG, QWK
     Dates: start: 20100801

REACTIONS (5)
  - WALKING AID USER [None]
  - CUTANEOUS LUPUS ERYTHEMATOSUS [None]
  - PRURITUS GENERALISED [None]
  - INJECTION SITE PAIN [None]
  - ARTHRALGIA [None]
